FAERS Safety Report 13523001 (Version 3)
Quarter: 2017Q2

REPORT INFORMATION
  Report Type: Spontaneous
  Country: US (occurrence: US)
  Receive Date: 20170508
  Receipt Date: 20170621
  Transmission Date: 20170830
  Serious: Yes (Death, Hospitalization)
  Sender: FDA-Public Use
  Company Number: US-VIFOR (INTERNATIONAL) INC.-VIT-2017-00764

PATIENT
  Age: 78 Year
  Sex: Male
  Weight: 87.53 kg

DRUGS (12)
  1. BUDESONIDE. [Concomitant]
     Active Substance: BUDESONIDE
     Dosage: 0.5MG/2
     Dates: start: 20160622
  2. AMLODIPINE [Concomitant]
     Active Substance: AMLODIPINE BESYLATE
     Dates: start: 20160622
  3. LEVEMIR [Concomitant]
     Active Substance: INSULIN DETEMIR
     Dates: start: 20160622
  4. VELTASSA [Suspect]
     Active Substance: PATIROMER
     Indication: HYPERKALAEMIA
     Route: 048
     Dates: start: 20160708
  5. ADAVIR [Concomitant]
     Dosage: 100/50
     Dates: start: 20160622
  6. ASCORBIC ACID. [Concomitant]
     Active Substance: ASCORBIC ACID
     Dosage: 500/5 ML
     Dates: start: 20160622
  7. ACETYLSALICYLIC ACID [Concomitant]
     Active Substance: ASPIRIN
     Dates: start: 20160622
  8. TRAZODONE [Concomitant]
     Active Substance: TRAZODONE HYDROCHLORIDE
  9. ALBUTEROL. [Concomitant]
     Active Substance: ALBUTEROL
     Dates: start: 20160622
  10. LASIX [Concomitant]
     Active Substance: FUROSEMIDE
     Dates: start: 20160622
  11. GABAPENTIN. [Concomitant]
     Active Substance: GABAPENTIN
     Dates: start: 20160622
  12. ATORVASTATIN [Concomitant]
     Active Substance: ATORVASTATIN
     Dates: start: 20160622

REACTIONS (7)
  - Death [Fatal]
  - Skin disorder [Not Recovered/Not Resolved]
  - Dry skin [Not Recovered/Not Resolved]
  - Acne [Not Recovered/Not Resolved]
  - Hospitalisation [Unknown]
  - Haemorrhage [Not Recovered/Not Resolved]
  - Rash [Recovering/Resolving]

NARRATIVE: CASE EVENT DATE: 2016
